FAERS Safety Report 21477360 (Version 3)
Quarter: 2022Q4

REPORT INFORMATION
  Report Type: Spontaneous
  Country: US (occurrence: US)
  Receive Date: 20221019
  Receipt Date: 20221226
  Transmission Date: 20230113
  Serious: No
  Sender: FDA-Public Use
  Company Number: US-ORGANON-O2210USA000503

PATIENT
  Age: 21 Year
  Sex: Female
  Weight: 101.13 kg

DRUGS (3)
  1. NEXPLANON [Suspect]
     Active Substance: ETONOGESTREL
     Dosage: 1 IMPLANT OF 68 MG FOR 3 YEARS (RIGHT UPPER ARM, OVER THE TRICEPS MUSCLE)
     Route: 058
     Dates: start: 202202, end: 20221005
  2. NAPROXEN [Concomitant]
     Active Substance: NAPROXEN
     Dosage: TABLET 1 TWICE A DAY PO PRN, 14 DAYS, 1 REFILLS
     Route: 048
  3. PROAIR HFA [Concomitant]
     Active Substance: ALBUTEROL SULFATE
     Indication: Wheezing
     Dosage: DOSAGE FORM: INHALATION AEROSOL 108 (90 BASE) MCG/ ACT INHALATION AEROSOL SOLUTION SHAKE WELL; 2 INH

REACTIONS (5)
  - Device kink [Recovered/Resolved]
  - Device breakage [Recovered/Resolved]
  - Injury [Unknown]
  - Device placement issue [Not Recovered/Not Resolved]
  - Implant site pain [Unknown]

NARRATIVE: CASE EVENT DATE: 20221005
